FAERS Safety Report 9255851 (Version 1)
Quarter: 2013Q2

REPORT INFORMATION
  Report Type: Spontaneous
  Country: LB (occurrence: LB)
  Receive Date: 20130425
  Receipt Date: 20130425
  Transmission Date: 20140414
  Serious: Yes (Life-Threatening, Disabling)
  Sender: FDA-Public Use
  Company Number: LB-GLAXOSMITHKLINE-B0886843A

PATIENT
  Sex: Male

DRUGS (1)
  1. NIQUITIN [Suspect]
     Indication: EX-TOBACCO USER

REACTIONS (1)
  - Somnolence [Recovering/Resolving]
